FAERS Safety Report 5592652-8 (Version None)
Quarter: 2008Q1

REPORT INFORMATION
  Report Type: 
  Country: None (occurrence: None)
  Receive Date: 20080115
  Receipt Date: 20080107
  Transmission Date: 20080703
  Serious: Yes (Hospitalization)
  Sender: FDA-Public Use
  Company Number: NL-BOEHRINGER INGELHEIM PHARMACEUTICALS, INC.-2008-BP-00488YA

PATIENT
  Sex: Male
  Weight: 60 kg

DRUGS (6)
  1. OMNIC CAPSULE [Suspect]
     Indication: BENIGN PROSTATIC HYPERPLASIA
     Route: 065
     Dates: start: 20070501, end: 20070810
  2. PREDNISOLONE [Concomitant]
  3. SERETIDE [Concomitant]
  4. SPIRIVA [Concomitant]
     Route: 055
  5. ACTOKIT COMBINATIEVERPAKKING [Concomitant]
  6. MOVICOL [Concomitant]

REACTIONS (1)
  - JAUNDICE CHOLESTATIC [None]
